FAERS Safety Report 9760188 (Version 1)
Quarter: 2013Q4

REPORT INFORMATION
  Report Type: Spontaneous
  Country: US (occurrence: None)
  Receive Date: 20131212
  Receipt Date: 20131212
  Transmission Date: 20140711
  Serious: Yes (Other)
  Sender: FDA-Public Use
  Company Number: 2013AP010381

PATIENT
  Age: 3 Year
  Sex: Female

DRUGS (4)
  1. CYCLOSPORINE [Suspect]
     Indication: RETINOBLASTOMA
  2. CARBOPLATIN [Suspect]
     Indication: RETINOBLASTOMA
     Route: 047
  3. ETOPOSIDE [Suspect]
     Indication: RETINOBLASTOMA
  4. VINCRISTINE [Suspect]
     Indication: RETINOBLASTOMA

REACTIONS (5)
  - Ocular vascular disorder [None]
  - Retinoblastoma [None]
  - Recurrent cancer [None]
  - Arteriosclerotic retinopathy [None]
  - Chorioretinal disorder [None]
